FAERS Safety Report 7609186-9 (Version None)
Quarter: 2011Q3

REPORT INFORMATION
  Report Type: 
  Country: None (occurrence: None)
  Receive Date: 20110712
  Receipt Date: 20110712
  Transmission Date: 20111222
  Serious: Yes (Other)
  Sender: FDA-Public Use
  Company Number: None

PATIENT
  Age: 42 Year
  Sex: Female
  Weight: 68.0396 kg

DRUGS (1)
  1. ALLER-TEC 10 MG PERRIGO FOR COSTCO WHOLESALE CORP [Suspect]
     Indication: SEASONAL ALLERGY
     Dosage: 10 MG QD PO
     Route: 048

REACTIONS (1)
  - PRURITUS [None]
